FAERS Safety Report 16323248 (Version 2)
Quarter: 2019Q2

REPORT INFORMATION
  Report Type: Spontaneous
  Country: JP (occurrence: JP)
  Receive Date: 20190517
  Receipt Date: 20190621
  Transmission Date: 20190711
  Serious: Yes (Congenital Anomaly)
  Sender: FDA-Public Use
  Company Number: JP-ASTELLAS-2019JP008592

PATIENT
  Age: 0 Day
  Sex: Female
  Weight: 1 kg

DRUGS (2)
  1. GRACEPTOR [Suspect]
     Active Substance: TACROLIMUS
     Indication: MATERNAL EXPOSURE DURING PREGNANCY
     Route: 064
  2. GRACEPTOR [Suspect]
     Active Substance: TACROLIMUS
     Route: 064
     Dates: start: 20140919

REACTIONS (1)
  - Low birth weight baby [Recovered/Resolved]

NARRATIVE: CASE EVENT DATE: 20160708
